FAERS Safety Report 17300099 (Version 1)
Quarter: 2020Q1

REPORT INFORMATION
  Report Type: Spontaneous
  Country: US (occurrence: US)
  Receive Date: 20200122
  Receipt Date: 20200122
  Transmission Date: 20200409
  Serious: No
  Sender: FDA-Public Use
  Company Number: US-ALLERGAN-1918882US

PATIENT
  Age: 83 Year
  Sex: Female

DRUGS (4)
  1. UNSPECIFIED CHOLESTEROL MEDICATION [Concomitant]
     Active Substance: UNSPECIFIED INGREDIENT
     Indication: BLOOD CHOLESTEROL INCREASED
     Route: 048
  2. RESTASIS [Suspect]
     Active Substance: CYCLOSPORINE
     Indication: DRY EYE
     Dosage: 2 GTT, BID
     Route: 047
  3. ANTIHYPERTENSIVES [Concomitant]
     Active Substance: UNSPECIFIED INGREDIENT
     Indication: HYPERTENSION
     Route: 048
  4. UNSPECIFIED VITAMINS [Concomitant]
     Active Substance: VITAMINS
     Indication: HYPERTENSION
     Route: 048

REACTIONS (1)
  - Multiple use of single-use product [Unknown]

NARRATIVE: CASE EVENT DATE: 2019
